FAERS Safety Report 7321055-0 (Version None)
Quarter: 2011Q1

REPORT INFORMATION
  Report Type: 
  Country: None (occurrence: None)
  Receive Date: 20110228
  Receipt Date: 20110218
  Transmission Date: 20110831
  Serious: Yes (Hospitalization, Other)
  Sender: FDA-Public Use
  Company Number: US-JNJFOC-20101005303

PATIENT
  Sex: Female

DRUGS (6)
  1. LEVAQUIN [Suspect]
     Indication: ACUTE SINUSITIS
     Route: 048
  2. LEVAQUIN [Suspect]
     Indication: SEPSIS
     Route: 042
  3. LEVAQUIN [Suspect]
     Route: 048
  4. PREDNISONE [Suspect]
     Indication: ANTIINFLAMMATORY THERAPY
     Route: 048
  5. LEVAQUIN [Suspect]
     Indication: UPPER RESPIRATORY TRACT INFECTION
     Route: 048
  6. PREDNISONE [Suspect]
     Indication: PAIN
     Route: 048

REACTIONS (4)
  - TENDON RUPTURE [None]
  - ROTATOR CUFF SYNDROME [None]
  - TENOSYNOVITIS STENOSANS [None]
  - TENOSYNOVITIS [None]
